FAERS Safety Report 24642119 (Version 3)
Quarter: 2024Q4

REPORT INFORMATION
  Report Type: Spontaneous
  Country: RO (occurrence: RO)
  Receive Date: 20241120
  Receipt Date: 20241203
  Transmission Date: 20250114
  Serious: Yes (Life-Threatening, Hospitalization, Other)
  Sender: ABBVIE
  Company Number: RO-ABBVIE-6007857

PATIENT
  Age: 60 Year
  Sex: Male
  Weight: 94 kg

DRUGS (13)
  1. SKYRIZI [Suspect]
     Active Substance: RISANKIZUMAB-RZAA
     Indication: Psoriasis
     Route: 058
  2. NORVASC [Concomitant]
     Active Substance: AMLODIPINE BESYLATE
     Indication: Product used for unknown indication
  3. CANZENO [Concomitant]
     Indication: Product used for unknown indication
  4. INDAPAMIDE [Concomitant]
     Active Substance: INDAPAMIDE
     Indication: Product used for unknown indication
  5. ASPIRIN [Concomitant]
     Active Substance: ASPIRIN
     Indication: Product used for unknown indication
  6. RINGERS SOLUTION [Concomitant]
     Active Substance: CALCIUM CHLORIDE\POTASSIUM CHLORIDE\SODIUM CHLORIDE
     Indication: Product used for unknown indication
  7. ENTECAVIR [Concomitant]
     Active Substance: ENTECAVIR
     Indication: Product used for unknown indication
  8. CEREBROLYSIN [Concomitant]
     Active Substance: CEREBROLYSIN
     Indication: Product used for unknown indication
  9. ROSUVASTATIN CALCIUM [Concomitant]
     Active Substance: ROSUVASTATIN CALCIUM
     Indication: Product used for unknown indication
  10. ATACAND [Concomitant]
     Active Substance: CANDESARTAN CILEXETIL
     Indication: Product used for unknown indication
  11. OMEPRAZOLE [Concomitant]
     Active Substance: OMEPRAZOLE
     Indication: Product used for unknown indication
  12. VITAMIN B1 [Concomitant]
     Active Substance: THIAMINE HYDROCHLORIDE
     Indication: Product used for unknown indication
     Dosage: 100MG/2ML
  13. VITAMIN B6 [Concomitant]
     Active Substance: PYRIDOXINE HYDROCHLORIDE
     Indication: Product used for unknown indication
     Dosage: 250MG/5ML

REACTIONS (36)
  - Cerebral infarction [Recovering/Resolving]
  - Cerebral artery occlusion [Unknown]
  - Cerebral arteriosclerosis [Unknown]
  - Balance disorder [Unknown]
  - Brain stem syndrome [Unknown]
  - Cerebrovascular stenosis [Unknown]
  - Demyelination [Unknown]
  - Brain scan abnormal [Unknown]
  - Paranasal sinus mucosal hypertrophy [Unknown]
  - Nasal turbinate hypertrophy [Unknown]
  - Nasal cavity mass [Unknown]
  - Facial asymmetry [Unknown]
  - Magnetic resonance imaging head abnormal [Unknown]
  - Unevaluable event [Unknown]
  - Dysmetria [Unknown]
  - Type V hyperlipidaemia [Unknown]
  - Nasal turbinate hypertrophy [Unknown]
  - Paranasal sinus mucosal hypertrophy [Unknown]
  - Cerebral artery stenosis [Unknown]
  - Chronic sinusitis [Unknown]
  - Periventricular leukomalacia [Unknown]
  - Carotid arteriosclerosis [Unknown]
  - Brain stem stroke [Unknown]
  - Carotid artery stenosis [Unknown]
  - Ischaemic stroke [Unknown]
  - Cerebral ischaemia [Unknown]
  - Motor dysfunction [Unknown]
  - Magnetic resonance imaging head abnormal [Unknown]
  - Carotid artery stenosis [Unknown]
  - Cerebral artery thrombosis [Recovering/Resolving]
  - Carotid artery occlusion [Unknown]
  - Fluid retention [Unknown]
  - Cyst [Unknown]
  - Lenticulostriatal vasculopathy [Unknown]
  - Progressive facial hemiatrophy [Unknown]
  - Facial paresis [Unknown]

NARRATIVE: CASE EVENT DATE: 20240304
